FAERS Safety Report 9714263 (Version 2)
Quarter: 2013Q4

REPORT INFORMATION
  Report Type: Spontaneous
  Country: US (occurrence: US)
  Receive Date: 20131126
  Receipt Date: 20131126
  Transmission Date: 20140711
  Serious: No
  Sender: FDA-Public Use
  Company Number: US-GILEAD-2008-0018647

PATIENT
  Age: 44 Year
  Sex: Female
  Weight: 92.99 kg

DRUGS (9)
  1. LETAIRIS [Suspect]
     Indication: PULMONARY ARTERIAL HYPERTENSION
     Route: 048
     Dates: start: 20080929
  2. FLOLAN [Concomitant]
  3. REVATIO [Concomitant]
  4. LIPITOR [Concomitant]
  5. LASIX [Concomitant]
  6. WARFARIN [Concomitant]
  7. ALBUTEROL [Concomitant]
  8. DETROL LA [Concomitant]
  9. K-DUR [Concomitant]

REACTIONS (4)
  - Abdominal distension [Not Recovered/Not Resolved]
  - Local swelling [Not Recovered/Not Resolved]
  - Headache [Unknown]
  - Nasal congestion [Unknown]
